FAERS Safety Report 19000163 (Version 1)
Quarter: 2021Q1

REPORT INFORMATION
  Report Type: Report from Study
  Country: JP (occurrence: JP)
  Receive Date: 20210312
  Receipt Date: 20210312
  Transmission Date: 20210420
  Serious: Yes (Hospitalization)
  Sender: FDA-Public Use
  Company Number: JP-KYOWAKIRIN-2021AKK003248

PATIENT

DRUGS (11)
  1. L?CARBOCISTEINE [Concomitant]
     Active Substance: CARBOCYSTEINE
     Indication: UPPER RESPIRATORY TRACT INFLAMMATION
     Dosage: UNK
     Route: 048
  2. ASVERIN (TIPEPIDINE HIBENZATE) [Concomitant]
     Active Substance: TIPEPIDINE HIBENZATE
     Indication: UPPER RESPIRATORY TRACT INFLAMMATION
     Dosage: UNK
     Route: 048
  3. PRANLUKAST [Concomitant]
     Active Substance: PRANLUKAST
     Indication: ASTHMA
     Dosage: UNK
     Route: 048
  4. BUROSUMAB [Suspect]
     Active Substance: BUROSUMAB
     Indication: FIBROUS DYSPLASIA OF BONE
  5. LETROZOLE. [Concomitant]
     Active Substance: LETROZOLE
     Dosage: UNK
     Route: 048
  6. ALESION LX [Concomitant]
     Indication: CONJUNCTIVITIS ALLERGIC
     Dosage: UNK
     Route: 047
  7. LOCOID [Concomitant]
     Active Substance: HYDROCORTISONE BUTYRATE
     Indication: DERMATITIS
     Dosage: UNK
     Route: 061
  8. PROPETO [Concomitant]
     Active Substance: PETROLATUM
     Indication: DERMATITIS
     Dosage: UNK
     Route: 061
  9. BUROSUMAB [Suspect]
     Active Substance: BUROSUMAB
     Indication: ALBRIGHT^S DISEASE
     Dosage: 10 MG, 1X/2 WEEKS
     Route: 058
     Dates: start: 20200410
  10. RAVONAL [Concomitant]
     Active Substance: THIOPENTAL
     Dosage: UNK
     Route: 065
  11. RINDERON A [Concomitant]
     Active Substance: BETAMETHASONE SODIUM PHOSPHATE\NEOMYCIN SULFATE
     Indication: CONJUNCTIVITIS ALLERGIC
     Dosage: UNK
     Route: 047

REACTIONS (6)
  - Meniscus injury [Unknown]
  - Asthma [Recovered/Resolved]
  - Dermatitis [Recovered/Resolved]
  - Upper respiratory tract inflammation [Recovered/Resolved]
  - Conjunctivitis allergic [Recovered/Resolved]
  - Product use in unapproved indication [Not Recovered/Not Resolved]

NARRATIVE: CASE EVENT DATE: 20200410
